FAERS Safety Report 8936777 (Version 1)
Quarter: 2012Q4

REPORT INFORMATION
  Report Type: 
  Country: GB (occurrence: GB)
  Receive Date: 20121130
  Receipt Date: 20121130
  Transmission Date: 20130627
  Serious: Yes (Hospitalization)
  Sender: FDA-Public Use
  Company Number: GB-TEVA-371942ISR

PATIENT
  Age: 2 Hour
  Sex: Male
  Weight: 2.43 kg

DRUGS (1)
  1. SERTRALINE [Suspect]
     Indication: DEPRESSION
     Dosage: 50mg daily (Maternal dose)
     Route: 064

REACTIONS (7)
  - Use of accessory respiratory muscles [Recovering/Resolving]
  - Tachypnoea [Recovering/Resolving]
  - Tardive dyskinesia [Recovering/Resolving]
  - Dyskinesia [Recovering/Resolving]
  - Hypertonia [Recovering/Resolving]
  - Grunting [Recovering/Resolving]
  - Neonatal respiratory distress syndrome [Recovering/Resolving]
